FAERS Safety Report 4421104-3 (Version None)
Quarter: 2004Q3

REPORT INFORMATION
  Report Type: 
  Country: None (occurrence: None)
  Receive Date: 20040707
  Receipt Date: 20040520
  Transmission Date: 20050211
  Serious: Yes (Other)
  Sender: FDA-Public Use
  Company Number: 368381

PATIENT
  Sex: Male

DRUGS (1)
  1. FUZEON [Suspect]
     Dosage: SUBCUTANEOUS
     Route: 058

REACTIONS (1)
  - PAIN [None]
